FAERS Safety Report 7037549-1 (Version None)
Quarter: 2010Q4

REPORT INFORMATION
  Report Type: 
  Country: None (occurrence: None)
  Receive Date: 20101011
  Receipt Date: 20101001
  Transmission Date: 20110411
  Serious: Yes (Hospitalization)
  Sender: FDA-Public Use
  Company Number: DE-ABBOTT-10P-062-0675749-00

PATIENT
  Sex: Male
  Weight: 58 kg

DRUGS (6)
  1. HUMIRA [Suspect]
     Indication: CROHN'S DISEASE
     Dates: start: 20100208, end: 20100208
  2. HUMIRA [Suspect]
     Dates: start: 20100222, end: 20100401
  3. PREDNISOLON [Concomitant]
     Indication: CROHN'S DISEASE
     Dates: start: 20100420
  4. CALCIUM D3 [Concomitant]
     Indication: PRODUCT USED FOR UNKNOWN INDICATION
     Dosage: BID
  5. AZATHIOPRIN [Concomitant]
     Indication: PRODUCT USED FOR UNKNOWN INDICATION
  6. INFLIXIMAB [Concomitant]
     Indication: PRODUCT USED FOR UNKNOWN INDICATION
     Dates: start: 20061101, end: 20100101

REACTIONS (6)
  - ABDOMINAL PAIN LOWER [None]
  - CACHEXIA [None]
  - COLITIS [None]
  - CROHN'S DISEASE [None]
  - DRUG THERAPY [None]
  - GENERAL PHYSICAL HEALTH DETERIORATION [None]
